FAERS Safety Report 8386212-3 (Version None)
Quarter: 2012Q2

REPORT INFORMATION
  Report Type: 
  Country: None (occurrence: None)
  Receive Date: 20120525
  Receipt Date: 20120522
  Transmission Date: 20120825
  Serious: Yes (Other)
  Sender: FDA-Public Use
  Company Number: US-PFIZER INC-2012057185

PATIENT
  Sex: Female
  Weight: 76.19 kg

DRUGS (8)
  1. ESTROGENS CONJUGATED [Suspect]
     Indication: MENOPAUSE
     Dosage: UNK
  2. BUSPAR [Concomitant]
     Indication: BIPOLAR DISORDER
     Dosage: 30 MG, 2X/DAY
  3. BUSPAR [Concomitant]
     Indication: DEPRESSION
  4. SEROQUEL [Concomitant]
     Indication: DEPRESSION
     Dosage: 40 MG, DAILY AT BED TIME
  5. CHANTIX [Suspect]
     Dosage: 0.5 MG, 2X/DAY
     Route: 048
     Dates: start: 20120301, end: 20120301
  6. CHANTIX [Suspect]
     Dosage: UNK
     Route: 048
     Dates: start: 20120301, end: 20120306
  7. CHANTIX [Suspect]
     Indication: SMOKING CESSATION THERAPY
     Dosage: 0.5 MG, DAILY
     Route: 048
     Dates: start: 20120301, end: 20120301
  8. COMPAZINE [Suspect]
     Indication: GALLBLADDER PAIN
     Dosage: UNK

REACTIONS (5)
  - FATIGUE [None]
  - SWELLING FACE [None]
  - HYPERSENSITIVITY [None]
  - DYSPNOEA [None]
  - OEDEMA PERIPHERAL [None]
